FAERS Safety Report 15958125 (Version 2)
Quarter: 2019Q1

REPORT INFORMATION
  Report Type: Spontaneous
  Country: US (occurrence: US)
  Receive Date: 20190213
  Receipt Date: 20190313
  Transmission Date: 20190417
  Serious: No
  Sender: FDA-Public Use
  Company Number: US-ACTELION-A-NJ2019-185880

PATIENT
  Age: 67 Year
  Sex: Female
  Weight: 58.5 kg

DRUGS (3)
  1. REMODULIN [Concomitant]
     Active Substance: TREPROSTINIL
  2. TADALAFIL. [Concomitant]
     Active Substance: TADALAFIL
  3. OPSUMIT [Suspect]
     Active Substance: MACITENTAN
     Indication: PULMONARY ARTERIAL HYPERTENSION
     Dosage: 10 MG, QD
     Route: 048

REACTIONS (7)
  - Extra dose administered [Unknown]
  - Headache [Unknown]
  - Peripheral swelling [Unknown]
  - Paraesthesia [Unknown]
  - Catheter site inflammation [Unknown]
  - Catheter site scab [Recovering/Resolving]
  - Catheter site erythema [Unknown]

NARRATIVE: CASE EVENT DATE: 20190126
